FAERS Safety Report 7350544-8 (Version None)
Quarter: 2011Q1

REPORT INFORMATION
  Report Type: 
  Country: None (occurrence: None)
  Receive Date: 20110314
  Receipt Date: 20110303
  Transmission Date: 20110831
  Serious: Yes (Other)
  Sender: FDA-Public Use
  Company Number: CA-JNJFOC-20110302179

PATIENT
  Age: 42 Year
  Sex: Female
  Weight: 81.65 kg

DRUGS (2)
  1. ROGAINE 2% SOLUTION [Suspect]
     Route: 061
  2. ROGAINE 2% SOLUTION [Suspect]
     Indication: ALOPECIA
     Route: 061

REACTIONS (5)
  - WRONG DRUG ADMINISTERED [None]
  - UNDERDOSE [None]
  - BLINDNESS TRANSIENT [None]
  - VISION BLURRED [None]
  - HEADACHE [None]
